FAERS Safety Report 4975166-5 (Version None)
Quarter: 2006Q2

REPORT INFORMATION
  Report Type: 
  Country: None (occurrence: None)
  Receive Date: 20060417
  Receipt Date: 20060417
  Transmission Date: 20061013
  Serious: Yes (Hospitalization)
  Sender: FDA-Public Use
  Company Number: None

PATIENT
  Sex: Male
  Weight: 111.5849 kg

DRUGS (13)
  1. TAXOTERE [Suspect]
     Indication: PROSTATE CANCER
     Dosage: 60 MG   DAYS 1,8,15 Q 28 D    IV DRIP
     Route: 041
     Dates: start: 20060302, end: 20060330
  2. DOXIL [Suspect]
     Indication: PROSTATE CANCER
     Dosage: 60 MG    DAY 1 Q 28 DAYS   IV DRIP
     Route: 041
     Dates: start: 20060302, end: 20060330
  3. METROCLOPRAMIDE [Concomitant]
  4. ISOPRIL/HCTZ [Concomitant]
  5. NIFIDIAC [Concomitant]
  6. FUROSEMIDE [Concomitant]
  7. HYDROCORTISONE [Concomitant]
  8. VYTORIN [Concomitant]
  9. CENTRIUM SILVER [Concomitant]
  10. PROTONIX [Concomitant]
  11. N-INSULIN [Concomitant]
  12. R-INSULIN [Concomitant]
  13. COMPAZINE [Concomitant]

REACTIONS (2)
  - CATHETER RELATED COMPLICATION [None]
  - JUGULAR VEIN THROMBOSIS [None]
